FAERS Safety Report 9055016 (Version 1)
Quarter: 2013Q1

REPORT INFORMATION
  Report Type: Spontaneous
  Country: US (occurrence: US)
  Receive Date: 20130206
  Receipt Date: 20130206
  Transmission Date: 20140127
  Serious: No
  Sender: FDA-Public Use
  Company Number: US-PFIZER INC-2013047715

PATIENT
  Sex: Female

DRUGS (1)
  1. XANAX [Suspect]
     Dosage: UNK

REACTIONS (4)
  - Dizziness [Unknown]
  - Anxiety [Unknown]
  - Nausea [Unknown]
  - Nervousness [Unknown]
